FAERS Safety Report 8247747-7 (Version None)
Quarter: 2012Q1

REPORT INFORMATION
  Report Type: 
  Country: None (occurrence: None)
  Receive Date: 20120330
  Receipt Date: 20120322
  Transmission Date: 20120608
  Serious: Yes (Hospitalization)
  Sender: FDA-Public Use
  Company Number: JP-GLAXOSMITHKLINE-B0738961A

PATIENT
  Sex: Female
  Weight: 50 kg

DRUGS (17)
  1. DEPAKENE [Concomitant]
     Indication: PROPHYLAXIS
     Route: 048
     Dates: start: 20110111
  2. PHENYTOIN SODIUM CAP [Concomitant]
     Indication: PROPHYLAXIS
     Route: 048
  3. KEPPRA [Concomitant]
     Indication: PROPHYLAXIS
     Route: 048
     Dates: start: 20111122
  4. TYKERB [Suspect]
     Dosage: 1250MG PER DAY
     Route: 048
     Dates: start: 20110301, end: 20110321
  5. TYKERB [Suspect]
     Dosage: 1250MG PER DAY
     Route: 048
     Dates: start: 20110719, end: 20111122
  6. XELODA [Suspect]
     Dosage: 1800MG PER DAY
     Route: 048
     Dates: start: 20110426, end: 20110510
  7. TYKERB [Suspect]
     Dosage: 1250MG PER DAY
     Route: 048
     Dates: start: 20111203
  8. XELODA [Suspect]
     Dosage: 2400MG PER DAY
     Route: 048
     Dates: start: 20110301, end: 20110321
  9. XELODA [Suspect]
     Dosage: 1800MG PER DAY
     Route: 048
     Dates: start: 20110523, end: 20110715
  10. PYRIDOXAL PHOSPHATE [Concomitant]
     Indication: PROPHYLAXIS
     Route: 048
     Dates: start: 20110111
  11. DECADRON [Concomitant]
     Indication: PROPHYLAXIS
     Route: 048
     Dates: start: 20110111
  12. WARFARIN SODIUM [Concomitant]
     Indication: VENA CAVA FILTER INSERTION
     Route: 048
  13. XELODA [Suspect]
     Indication: PRODUCT USED FOR UNKNOWN INDICATION
     Dosage: 2400MG PER DAY
     Route: 048
     Dates: start: 20110111, end: 20110221
  14. HIRUDOID [Concomitant]
     Indication: PROPHYLAXIS
     Route: 061
     Dates: start: 20110111
  15. FAMOTIDINE [Concomitant]
     Indication: PROPHYLAXIS AGAINST GASTROINTESTINAL ULCER
     Route: 048
     Dates: start: 20110111
  16. TYKERB [Suspect]
     Indication: BREAST CANCER
     Dosage: 1250MG PER DAY
     Route: 048
     Dates: start: 20110111, end: 20110221
  17. TYKERB [Suspect]
     Dosage: 1250MG PER DAY
     Route: 048
     Dates: start: 20110426, end: 20110715

REACTIONS (3)
  - EPILEPSY [None]
  - PULMONARY EMBOLISM [None]
  - VENOUS THROMBOSIS [None]
